FAERS Safety Report 7668927-5 (Version None)
Quarter: 2011Q3

REPORT INFORMATION
  Report Type: 
  Country: None (occurrence: None)
  Receive Date: 20110808
  Receipt Date: 20110719
  Transmission Date: 20111222
  Serious: Yes (Hospitalization)
  Sender: FDA-Public Use
  Company Number: US-GLAXOSMITHKLINE-A0890951A

PATIENT
  Age: 70 Year
  Sex: Female
  Weight: 95.5 kg

DRUGS (6)
  1. HYDROCHLOROTHIAZIDE [Concomitant]
  2. METFORMIN HCL [Concomitant]
  3. TOPROL-XL [Concomitant]
  4. CLONIDINE [Concomitant]
  5. AVANDIA [Suspect]
     Indication: DIABETES MELLITUS
     Dosage: 8MG PER DAY
     Route: 048
     Dates: end: 20070101
  6. GLIPIZIDE [Concomitant]

REACTIONS (7)
  - AORTIC VALVE STENOSIS [None]
  - MITRAL VALVE INCOMPETENCE [None]
  - CORONARY ARTERY OCCLUSION [None]
  - LEFT VENTRICULAR HYPERTROPHY [None]
  - PALPITATIONS [None]
  - CARDIAC FAILURE CONGESTIVE [None]
  - CORONARY ARTERY STENOSIS [None]
